FAERS Safety Report 21204788 (Version 1)
Quarter: 2022Q3

REPORT INFORMATION
  Report Type: Report from Study
  Country: MX (occurrence: MX)
  Receive Date: 20220812
  Receipt Date: 20220812
  Transmission Date: 20221027
  Serious: Yes (Other)
  Sender: FDA-Public Use
  Company Number: MX-NOVARTISPH-NVSC2022MX182469

PATIENT
  Sex: Female

DRUGS (1)
  1. METFORMIN HYDROCHLORIDE\VILDAGLIPTIN [Suspect]
     Active Substance: METFORMIN HYDROCHLORIDE\VILDAGLIPTIN
     Indication: Product used for unknown indication
     Dosage: (850MG: METFORMIN AND 50MG: VILDAGLIPTIN)
     Route: 048

REACTIONS (4)
  - Cardiac arrest [Unknown]
  - Palpitations [Unknown]
  - Nervousness [Unknown]
  - Tremor [Unknown]
